FAERS Safety Report 7878229-X (Version None)
Quarter: 2011Q4

REPORT INFORMATION
  Report Type: 
  Country: None (occurrence: None)
  Receive Date: 20111101
  Receipt Date: 20111018
  Transmission Date: 20120403
  Serious: Yes (Hospitalization, Other)
  Sender: FDA-Public Use
  Company Number: US-RANBAXY-2011US-50048

PATIENT
  Age: 83 Year
  Sex: Female

DRUGS (2)
  1. VERAPAMIL [Suspect]
     Indication: PRODUCT USED FOR UNKNOWN INDICATION
     Dosage: UNK, UNK
     Route: 065
  2. DIGOXIN [Suspect]
     Indication: PRODUCT USED FOR UNKNOWN INDICATION
     Dosage: UNK
     Route: 065

REACTIONS (5)
  - VENTRICULAR TACHYCARDIA [None]
  - TORSADE DE POINTES [None]
  - TOXICITY TO VARIOUS AGENTS [None]
  - HYPOCALCAEMIA [None]
  - POISONING [None]
